FAERS Safety Report 5146674-1 (Version None)
Quarter: 2006Q4

REPORT INFORMATION
  Report Type: 
  Country: None (occurrence: None)
  Receive Date: 20061109
  Receipt Date: 20061027
  Transmission Date: 20070319
  Serious: Yes (Other)
  Sender: FDA-Public Use
  Company Number: PHBS2006JP16847

PATIENT
  Age: 66 Year
  Sex: Female

DRUGS (2)
  1. AREDIA [Suspect]
     Indication: METASTASES TO BONE
     Route: 042
     Dates: end: 20060101
  2. ZOMETA [Suspect]
     Indication: METASTASES TO BONE
     Dosage: 5 MG, VIA DRIP INFUSION
     Route: 042
     Dates: start: 20060501, end: 20060911

REACTIONS (3)
  - GINGIVAL EROSION [None]
  - OSTEONECROSIS [None]
  - TOOTHACHE [None]
